FAERS Safety Report 20552050 (Version 3)
Quarter: 2022Q2

REPORT INFORMATION
  Report Type: Other
  Country: GB (occurrence: GB)
  Receive Date: 20220304
  Receipt Date: 20220628
  Transmission Date: 20220720
  Serious: Yes (Congenital Anomaly, Other)
  Sender: FDA-Public Use
  Company Number: GB-002147023-NVSC2021GB294767

PATIENT
  Age: 1 Year
  Sex: Male
  Weight: 2.915 kg

DRUGS (3)
  1. EMTRICITABINE\TENOFOVIR DISOPROXIL [Suspect]
     Active Substance: EMTRICITABINE\TENOFOVIR DISOPROXIL
     Indication: HIV infection
     Dosage: 1 DOSAGE FORM, QD (MATERNAL DOSE: 1 DOSAGE FORM, QD (TABS/CAPS))
     Route: 064
     Dates: start: 20190828
  2. ATAZANAVIR [Suspect]
     Active Substance: ATAZANAVIR
     Indication: HIV infection
     Dosage: 1 DOSAGE FORM, QD (MATERNAL DOSE: 1 DOSAGE FORM, QD (TABS/CAPS))
     Route: 064
     Dates: start: 20191028
  3. RITONAVIR [Suspect]
     Active Substance: RITONAVIR
     Indication: HIV infection
     Dosage: 1 DOSAGE FORM, QD (MATERNAL DOSE: 1 DOSAGE FORM, QD (TABS/CAPS))
     Route: 064
     Dates: start: 20191028

REACTIONS (8)
  - Foetal chromosome abnormality [Unknown]
  - Craniofacial deformity [Unknown]
  - Foetal exposure during pregnancy [Unknown]
  - Trisomy 21 [Unknown]
  - Nystagmus [Unknown]
  - Oedema [Unknown]
  - Ultrasound antenatal screen [Unknown]
  - Eye disorder [Unknown]
